FAERS Safety Report 8809726 (Version 2)
Quarter: 2012Q4

REPORT INFORMATION
  Report Type: 
  Country: US (occurrence: US)
  Receive Date: 20120926
  Receipt Date: 20121017
  Transmission Date: 20130627
  Serious: No
  Sender: FDA-Public Use
  Company Number: US-US-EMD SERONO, INC.-7162660

PATIENT
  Sex: Female

DRUGS (6)
  1. REBIF [Suspect]
     Indication: MULTIPLE SCLEROSIS
     Route: 058
     Dates: start: 20120118
  2. TOPAMAX [Concomitant]
     Indication: MULTIPLE SCLEROSIS
  3. VESICARE [Concomitant]
     Indication: MULTIPLE SCLEROSIS
  4. CELEBREX [Concomitant]
     Indication: MULTIPLE SCLEROSIS
  5. XANAX [Concomitant]
     Indication: MULTIPLE SCLEROSIS
     Dosage: every six hours as needed
  6. VERAPAMIL SLOW RELEASE [Concomitant]
     Indication: MULTIPLE SCLEROSIS
     Dosage: at bedtime

REACTIONS (1)
  - Injection site discolouration [Not Recovered/Not Resolved]
